FAERS Safety Report 6999850-7 (Version None)
Quarter: 2010Q3

REPORT INFORMATION
  Report Type: 
  Country: None (occurrence: None)
  Receive Date: 20100920
  Receipt Date: 20091022
  Transmission Date: 20110219
  Serious: No
  Sender: FDA-Public Use
  Company Number: US-ASTRAZENECA-2007UW12326

PATIENT
  Age: 52 Year
  Sex: Female
  Weight: 108.9 kg

DRUGS (14)
  1. SEROQUEL [Suspect]
     Indication: INSOMNIA
     Route: 048
     Dates: start: 20020101, end: 20060808
  2. SEROQUEL [Suspect]
     Indication: BIPOLAR DISORDER
     Route: 048
     Dates: start: 20020101, end: 20060808
  3. SEROQUEL [Suspect]
     Route: 048
     Dates: start: 20030101, end: 20070101
  4. SEROQUEL [Suspect]
     Route: 048
     Dates: start: 20030101, end: 20070101
  5. SEROQUEL [Suspect]
     Route: 048
     Dates: start: 20031111
  6. SEROQUEL [Suspect]
     Route: 048
     Dates: start: 20031111
  7. DOCUSATE SODIUM [Concomitant]
     Dates: start: 20040216
  8. LISINOPRIL AND HYDROCHLOROTHIAZIDE [Concomitant]
     Dosage: 20/25
     Dates: start: 20040630
  9. DICLOFENAC SODIUM [Concomitant]
     Dates: start: 20040318
  10. LEXAPRO [Concomitant]
     Dates: start: 20040401
  11. ALLOPURINOL [Concomitant]
     Dates: start: 20040401
  12. BUSPIRONE HCL [Concomitant]
     Dates: start: 20040428
  13. WELLBUTRIN XL [Concomitant]
     Dates: start: 20040528
  14. NEURONTIN [Concomitant]
     Dates: start: 20040617

REACTIONS (3)
  - CHRONIC OBSTRUCTIVE PULMONARY DISEASE [None]
  - OBESITY [None]
  - TYPE 2 DIABETES MELLITUS [None]
